FAERS Safety Report 14198125 (Version 1)
Quarter: 2017Q4

REPORT INFORMATION
  Report Type: Spontaneous
  Country: US (occurrence: US)
  Receive Date: 20171117
  Receipt Date: 20171117
  Transmission Date: 20180321
  Serious: Yes (Hospitalization)
  Sender: FDA-Public Use
  Company Number: US-RECORDATI RARE DISEASES-US-R13005-17-00242

PATIENT
  Age: 6 Month
  Sex: Male

DRUGS (1)
  1. METHAMPHETAMINE [Suspect]
     Active Substance: METHAMPHETAMINE
     Indication: PRODUCT USED FOR UNKNOWN INDICATION
     Route: 065

REACTIONS (8)
  - Agitation [Recovered/Resolved]
  - Nystagmus [Recovered/Resolved]
  - Mydriasis [Recovered/Resolved]
  - Pupillary disorder [Recovered/Resolved]
  - Toxicity to various agents [Recovered/Resolved]
  - Irritability [Recovered/Resolved]
  - Movement disorder [Recovered/Resolved]
  - Tachycardia [Recovered/Resolved]
